FAERS Safety Report 6654617-4 (Version None)
Quarter: 2010Q1

REPORT INFORMATION
  Report Type: 
  Country: None (occurrence: None)
  Receive Date: 20100326
  Receipt Date: 20100318
  Transmission Date: 20100710
  Serious: Yes (Hospitalization)
  Sender: FDA-Public Use
  Company Number: ZA-ABBOTT-10P-143-0632076-00

PATIENT
  Sex: Male

DRUGS (1)
  1. HUMIRA [Suspect]
     Indication: CROHN'S DISEASE
     Route: 058
     Dates: start: 20091118

REACTIONS (5)
  - ANAEMIA [None]
  - DRUG INEFFECTIVE [None]
  - ILEORECTAL FISTULA [None]
  - INTESTINAL MASS [None]
  - WEIGHT DECREASED [None]
